FAERS Safety Report 11378247 (Version 1)
Quarter: 2015Q3

REPORT INFORMATION
  Report Type: Spontaneous
  Country: US (occurrence: US)
  Receive Date: 20150811
  Receipt Date: 20150811
  Transmission Date: 20151125
  Serious: Yes (Hospitalization, Other)
  Sender: FDA-Public Use
  Company Number: US-ELI_LILLY_AND_COMPANY-US201206007559

PATIENT
  Age: 57 Year
  Sex: Female
  Weight: 47.62 kg

DRUGS (2)
  1. REMODULIN [Concomitant]
     Active Substance: TREPROSTINIL
     Indication: COR PULMONALE CHRONIC
     Dosage: 86 NG/KG/MIN
     Route: 058
     Dates: start: 20120118
  2. ADCIRCA [Suspect]
     Active Substance: TADALAFIL

REACTIONS (2)
  - Myocardial infarction [Recovering/Resolving]
  - Swelling [Unknown]

NARRATIVE: CASE EVENT DATE: 20120614
